FAERS Safety Report 7046280-8 (Version None)
Quarter: 2010Q4

REPORT INFORMATION
  Report Type: 
  Country: None (occurrence: None)
  Receive Date: 20101014
  Receipt Date: 20101009
  Transmission Date: 20110411
  Serious: Yes (Hospitalization)
  Sender: FDA-Public Use
  Company Number: A0886558A

PATIENT
  Sex: Female
  Weight: 90 kg

DRUGS (4)
  1. AVANDAMET [Suspect]
     Dosage: 1TAB PER DAY
     Route: 065
     Dates: start: 20030101, end: 20101006
  2. INSULIN [Concomitant]
     Dosage: 35CC TWICE PER DAY
     Dates: start: 20030101
  3. CAPTOPRIL [Concomitant]
     Dosage: 1TAB THREE TIMES PER DAY
     Dates: start: 20030101
  4. RANITIDINE [Concomitant]
     Dosage: 1TAB THREE TIMES PER DAY
     Route: 065
     Dates: start: 20030101

REACTIONS (3)
  - CEREBROVASCULAR ACCIDENT [None]
  - NERVOUS SYSTEM DISORDER [None]
  - VISUAL FIELD DEFECT [None]
